FAERS Safety Report 23132944 (Version 9)
Quarter: 2024Q3

REPORT INFORMATION
  Report Type: Spontaneous
  Country: US (occurrence: US)
  Receive Date: 20231101
  Receipt Date: 20240711
  Transmission Date: 20241016
  Serious: No
  Sender: BIOGEN
  Company Number: US-BIOGEN-2023BI01187762

PATIENT
  Age: 69 Year
  Sex: Female

DRUGS (15)
  1. VUMERITY [Suspect]
     Active Substance: DIROXIMEL FUMARATE
     Indication: Multiple sclerosis
     Route: 050
     Dates: start: 20210705, end: 202301
  2. VUMERITY [Suspect]
     Active Substance: DIROXIMEL FUMARATE
     Dosage: RESTARTED VUMERITY ON 08-NOV-2023
     Route: 050
     Dates: start: 20231108, end: 20240424
  3. FLUOXETINE [Concomitant]
     Active Substance: FLUOXETINE HYDROCHLORIDE
     Route: 050
  4. OMEPRAZOLE [Concomitant]
     Active Substance: OMEPRAZOLE
     Route: 050
  5. DONEPEZIL HYDROCHLORIDE [Concomitant]
     Active Substance: DONEPEZIL HYDROCHLORIDE
     Route: 050
  6. ROSUVASTATIN CALCIUM [Concomitant]
     Active Substance: ROSUVASTATIN CALCIUM
     Route: 050
  7. LEVOTHYROXINE SODIUM [Concomitant]
     Active Substance: LEVOTHYROXINE SODIUM
     Route: 050
  8. FIBER THERAPY (CALCIUM POLYCARBOPHIL) [Concomitant]
     Active Substance: CALCIUM POLYCARBOPHIL
     Route: 050
  9. CALCIUM [Concomitant]
     Active Substance: CALCIUM
     Route: 050
  10. FISH OIL [Concomitant]
     Active Substance: FISH OIL
     Route: 050
  11. MAGNESIUM [Concomitant]
     Active Substance: MAGNESIUM
     Route: 050
  12. MELATONIN [Concomitant]
     Active Substance: MELATONIN
     Route: 050
  13. POTASSIUM [Concomitant]
     Active Substance: POTASSIUM
     Route: 050
  14. VITAMIN D3 [Concomitant]
     Active Substance: CHOLECALCIFEROL
     Route: 050
  15. FOLATE SODIUM [Concomitant]
     Active Substance: FOLATE SODIUM
     Route: 050

REACTIONS (9)
  - Respiratory syncytial virus infection [Not Recovered/Not Resolved]
  - Multiple sclerosis [Not Recovered/Not Resolved]
  - White blood cell count decreased [Unknown]
  - Red blood cell count decreased [Unknown]
  - Neutrophil percentage increased [Unknown]
  - Mean platelet volume increased [Unknown]
  - Lymphopenia [Not Recovered/Not Resolved]
  - Lymphocyte percentage decreased [Unknown]
  - Lymphocyte count decreased [Unknown]

NARRATIVE: CASE EVENT DATE: 20230101
